FAERS Safety Report 7999364-1 (Version None)
Quarter: 2011Q4

REPORT INFORMATION
  Report Type: 
  Country: None (occurrence: None)
  Receive Date: 20111221
  Receipt Date: 20111212
  Transmission Date: 20120403
  Serious: Yes (Hospitalization)
  Sender: FDA-Public Use
  Company Number: NL-MEDIMMUNE-MEDI-0014103

PATIENT
  Sex: Female
  Weight: 5.999 kg

DRUGS (3)
  1. SYNAGIS [Suspect]
     Indication: PREMATURE BABY
     Route: 030
     Dates: start: 20110912, end: 20111010
  2. SYNAGIS [Suspect]
     Route: 030
     Dates: start: 20111108, end: 20111108
  3. HYDROCHLOROTHIAZIDE [Concomitant]

REACTIONS (6)
  - THROAT TIGHTNESS [None]
  - CYANOSIS [None]
  - PYREXIA [None]
  - PSEUDOCROUP [None]
  - COUGH [None]
  - NASOPHARYNGITIS [None]
